FAERS Safety Report 23297163 (Version 1)
Quarter: 2023Q4

REPORT INFORMATION
  Report Type: Spontaneous
  Country: CN (occurrence: CN)
  Receive Date: 20231214
  Receipt Date: 20231214
  Transmission Date: 20240109
  Serious: Yes (Other)
  Sender: FDA-Public Use
  Company Number: CN-BAYER-2023A178784

PATIENT
  Age: 21 Year
  Sex: Female

DRUGS (1)
  1. YASMIN [Suspect]
     Active Substance: DROSPIRENONE\ETHINYL ESTRADIOL
     Dosage: UNK
     Route: 048
     Dates: start: 20231206

REACTIONS (2)
  - Laryngopharyngitis [Not Recovered/Not Resolved]
  - Pharyngolaryngeal abscess [Not Recovered/Not Resolved]

NARRATIVE: CASE EVENT DATE: 20231211
